FAERS Safety Report 9699669 (Version 3)
Quarter: 2013Q4

REPORT INFORMATION
  Report Type: Spontaneous
  Country: None (occurrence: US)
  Receive Date: 20131120
  Receipt Date: 20131125
  Transmission Date: 20140711
  Serious: No
  Sender: FDA-Public Use
  Company Number: US-TEVA-362970USA

PATIENT
  Age: 34 Year
  Sex: Female
  Weight: 98.06 kg

DRUGS (3)
  1. PARAGARD 380A [Suspect]
     Indication: CONTRACEPTION
     Route: 015
     Dates: start: 20120806, end: 20121004
  2. PARAGARD 380A [Suspect]
     Route: 015
     Dates: start: 20121010
  3. LAMICTAL [Concomitant]

REACTIONS (1)
  - Device expulsion [Recovered/Resolved]
